FAERS Safety Report 21536838 (Version 1)
Quarter: 2022Q4

REPORT INFORMATION
  Report Type: Spontaneous
  Country: US (occurrence: None)
  Receive Date: 20221101
  Receipt Date: 20221101
  Transmission Date: 20230113
  Serious: Yes (Life-Threatening, Hospitalization, Other)
  Sender: FDA-Public Use
  Company Number: None

PATIENT
  Age: 19 Year
  Sex: Male
  Weight: 109.35 kg

DRUGS (1)
  1. PALIPERIDONE [Suspect]
     Active Substance: PALIPERIDONE
     Indication: Product used for unknown indication
     Dosage: FREQUENCY : MONTHLY;?
     Route: 030

REACTIONS (13)
  - Chills [None]
  - Pyrexia [None]
  - Muscle rigidity [None]
  - Restlessness [None]
  - Tremor [None]
  - Tremor [None]
  - Mental status changes [None]
  - Confusional state [None]
  - Disorientation [None]
  - Anxiety [None]
  - Heart rate increased [None]
  - Blood pressure increased [None]
  - Swelling face [None]

NARRATIVE: CASE EVENT DATE: 20221028
